FAERS Safety Report 19990212 (Version 1)
Quarter: 2021Q4

REPORT INFORMATION
  Report Type: Spontaneous
  Country: US (occurrence: US)
  Receive Date: 20211022
  Receipt Date: 20211022
  Transmission Date: 20220303
  Serious: No
  Sender: FDA-Public Use
  Company Number: None

PATIENT
  Sex: Female

DRUGS (1)
  1. MAKENA [Suspect]
     Active Substance: HYDROXYPROGESTERONE CAPROATE
     Dosage: ?          OTHER STRENGTH:275MG/1.1M;
     Route: 058
     Dates: start: 202108

REACTIONS (2)
  - Adverse drug reaction [None]
  - Therapy cessation [None]
